FAERS Safety Report 5850252-6 (Version None)
Quarter: 2008Q3

REPORT INFORMATION
  Report Type: 
  Country: None (occurrence: None)
  Receive Date: 20080819
  Receipt Date: 20080811
  Transmission Date: 20090109
  Serious: Yes (Hospitalization)
  Sender: FDA-Public Use
  Company Number: PHHY2008FR17996

PATIENT
  Sex: Female

DRUGS (1)
  1. GLEEVEC [Suspect]
     Indication: GASTROINTESTINAL STROMAL TUMOUR
     Dosage: 400 MG, QD
     Route: 048
     Dates: start: 20070801

REACTIONS (7)
  - BIOPSY BONE MARROW ABNORMAL [None]
  - ECZEMA [None]
  - EOSINOPHILIA [None]
  - KERION [None]
  - MADAROSIS [None]
  - SCAR [None]
  - XERODERMA [None]
